FAERS Safety Report 7927672-9 (Version None)
Quarter: 2011Q4

REPORT INFORMATION
  Report Type: 
  Country: None (occurrence: None)
  Receive Date: 20111118
  Receipt Date: 20111109
  Transmission Date: 20120403
  Serious: Yes (Other)
  Sender: FDA-Public Use
  Company Number: US-GILEAD-2011-0036679

PATIENT
  Age: 27 Year
  Sex: Female

DRUGS (3)
  1. ACETAMINOPHEN [Concomitant]
     Dates: start: 20101111
  2. EMTRICITABINE/TENOFOVIR DISOPROXIL FUMARATE [Suspect]
     Indication: HIV INFECTION
     Dosage: UNK
     Route: 048
     Dates: start: 20100401, end: 20101209
  3. ACETAMINOPHEN [Concomitant]
     Dates: start: 20101209

REACTIONS (1)
  - ABORTION SPONTANEOUS [None]
